FAERS Safety Report 8879024 (Version 2)
Quarter: 2012Q4

REPORT INFORMATION
  Report Type: Report from Study
  Country: US (occurrence: US)
  Receive Date: 20121026
  Receipt Date: 20121107
  Transmission Date: 20130627
  Serious: Yes (Hospitalization, Other)
  Sender: FDA-Public Use
  Company Number: US-US-EMD SERONO, INC.-7169042

PATIENT
  Age: 31 Year
  Sex: Male
  Weight: 92 kg

DRUGS (4)
  1. REBIF [Suspect]
     Indication: MULTIPLE SCLEROSIS
     Route: 058
     Dates: start: 20050411
  2. VENLAFAXINE [Concomitant]
     Indication: DEPRESSION
     Route: 048
     Dates: start: 20101208
  3. CLONAZEPAM [Concomitant]
     Indication: ANXIETY
     Route: 048
  4. CLONAZEPAM [Concomitant]
     Indication: PANIC ATTACK

REACTIONS (2)
  - Injection site cellulitis [Recovering/Resolving]
  - Injection site necrosis [Recovering/Resolving]
